FAERS Safety Report 15577561 (Version 3)
Quarter: 2018Q4

REPORT INFORMATION
  Report Type: Spontaneous
  Country: US (occurrence: US)
  Receive Date: 20181102
  Receipt Date: 20181106
  Transmission Date: 20190205
  Serious: No
  Sender: FDA-Public Use
  Company Number: US-HETERO CORPORATE-HET2018US01146

PATIENT
  Sex: Female
  Weight: 70 kg

DRUGS (4)
  1. MONTELUKAST [Suspect]
     Active Substance: MONTELUKAST SODIUM
     Indication: HYPERSENSITIVITY
     Dosage: 10 MG
     Route: 065
     Dates: start: 2017
  2. MYFORTICS [Concomitant]
     Indication: PRODUCT USED FOR UNKNOWN INDICATION
     Dosage: UNK
     Route: 065
  3. LOSARTAN. [Suspect]
     Active Substance: LOSARTAN
     Indication: PRODUCT USED FOR UNKNOWN INDICATION
     Dosage: UNK
     Route: 065
  4. PREDNISOLONE. [Concomitant]
     Active Substance: PREDNISOLONE
     Indication: PRODUCT USED FOR UNKNOWN INDICATION
     Dosage: UNK
     Route: 065

REACTIONS (6)
  - Fatigue [Recovered/Resolved]
  - Lethargy [Recovered/Resolved]
  - Dyspnoea [Recovered/Resolved]
  - Dizziness [Recovered/Resolved]
  - Product dispensing error [Unknown]
  - Wrong product administered [Unknown]
